FAERS Safety Report 10370716 (Version 2)
Quarter: 2014Q3

REPORT INFORMATION
  Report Type: Spontaneous
  Country: US (occurrence: US)
  Receive Date: 20140808
  Receipt Date: 20140917
  Transmission Date: 20150326
  Serious: No
  Sender: FDA-Public Use
  Company Number: US-JNJFOC-20140705816

PATIENT
  Age: 73 Year
  Sex: Female

DRUGS (4)
  1. INVEGA [Suspect]
     Active Substance: PALIPERIDONE
     Indication: PARANOIA
     Dosage: FOR ABOUT 2 WEEKS
     Route: 048
     Dates: start: 20140520, end: 20140604
  2. ABILIFY [Concomitant]
     Active Substance: ARIPIPRAZOLE
     Route: 048
     Dates: start: 2013, end: 20140520
  3. INVEGA [Suspect]
     Active Substance: PALIPERIDONE
     Indication: HALLUCINATION
     Dosage: FOR ABOUT 2 WEEKS
     Route: 048
     Dates: start: 20140520, end: 20140604
  4. PROZAC [Concomitant]
     Active Substance: FLUOXETINE HYDROCHLORIDE
     Route: 048
     Dates: start: 2013

REACTIONS (1)
  - Vision blurred [Unknown]

NARRATIVE: CASE EVENT DATE: 20140522
